FAERS Safety Report 5265901-3 (Version None)
Quarter: 2007Q1

REPORT INFORMATION
  Report Type: 
  Country: None (occurrence: None)
  Receive Date: 20070315
  Receipt Date: 20070305
  Transmission Date: 20070707
  Serious: Yes (Other)
  Sender: FDA-Public Use
  Company Number: FR-JNJFOC-20070301402

PATIENT
  Sex: Male

DRUGS (2)
  1. RISPERDAL [Suspect]
     Indication: EATING DISORDER
     Route: 048
  2. ANTIPSYCHOTIC [Concomitant]
     Indication: PSYCHOTIC DISORDER
     Route: 065

REACTIONS (1)
  - BRADYCARDIA [None]
